FAERS Safety Report 12341073 (Version 1)
Quarter: 2016Q2

REPORT INFORMATION
  Report Type: Spontaneous
  Country: US (occurrence: US)
  Receive Date: 20160506
  Receipt Date: 20160506
  Transmission Date: 20160815
  Serious: No
  Sender: FDA-Public Use
  Company Number: US-BAUSCH-BL-2015-015070

PATIENT
  Sex: Female

DRUGS (2)
  1. OFLOXACIN OTIC [Suspect]
     Active Substance: OFLOXACIN
     Indication: EAR INFECTION
     Route: 001
     Dates: start: 20150403, end: 201504
  2. OFLOXACIN OTIC [Suspect]
     Active Substance: OFLOXACIN
     Route: 001
     Dates: start: 2015

REACTIONS (5)
  - Back pain [Unknown]
  - Muscle tightness [Unknown]
  - Muscle spasms [Unknown]
  - Tendon disorder [Not Recovered/Not Resolved]
  - Peripheral swelling [Not Recovered/Not Resolved]

NARRATIVE: CASE EVENT DATE: 2015
